FAERS Safety Report 15360505 (Version 1)
Quarter: 2018Q3

REPORT INFORMATION
  Report Type: Spontaneous
  Country: US (occurrence: US)
  Receive Date: 20180831
  Receipt Date: 20180831
  Transmission Date: 20181010
  Serious: Yes (Disabling)
  Sender: FDA-Public Use
  Company Number: None

PATIENT
  Age: 35 Year
  Sex: Female
  Weight: 55.8 kg

DRUGS (4)
  1. VITAMIN D [Concomitant]
     Active Substance: CHOLECALCIFEROL
  2. ADDERALL 20 MG XR [Concomitant]
  3. SERTRALINE [Suspect]
     Active Substance: SERTRALINE HYDROCHLORIDE
     Indication: POST-TRAUMATIC STRESS DISORDER
     Dosage: ?          QUANTITY:1 TABLET(S);?
     Route: 048
     Dates: start: 20180731, end: 20180830
  4. FISH OIL [Concomitant]
     Active Substance: FISH OIL

REACTIONS (4)
  - Condition aggravated [None]
  - Carpal tunnel syndrome [None]
  - Insomnia [None]
  - Paraesthesia [None]

NARRATIVE: CASE EVENT DATE: 20180817
